FAERS Safety Report 6852174-0 (Version None)
Quarter: 2010Q3

REPORT INFORMATION
  Report Type: 
  Country: None (occurrence: None)
  Receive Date: 20100717
  Receipt Date: 20071214
  Transmission Date: 20110219
  Serious: No
  Sender: FDA-Public Use
  Company Number: US-PFIZER INC-2007094136

PATIENT
  Sex: Female
  Weight: 87.1 kg

DRUGS (10)
  1. CHANTIX [Suspect]
     Indication: SMOKING CESSATION THERAPY
     Dates: start: 20070701
  2. ZYRTEC [Concomitant]
  3. VYTORIN [Concomitant]
  4. GEMFIBROZIL [Concomitant]
  5. PEPCID AC [Concomitant]
  6. ACETYLSALICYLIC ACID [Concomitant]
  7. FLEXERIL [Concomitant]
  8. VICODIN [Concomitant]
     Dosage: 5 MG/500 MG; 10 MG/1000 MG
  9. AMBIEN [Concomitant]
  10. BENAZEPRIL HYDROCHLORIDE [Concomitant]

REACTIONS (2)
  - NAUSEA [None]
  - WEIGHT DECREASED [None]
